FAERS Safety Report 16920304 (Version 1)
Quarter: 2019Q4

REPORT INFORMATION
  Report Type: Report from Study
  Country: ZA (occurrence: ZA)
  Receive Date: 20191015
  Receipt Date: 20191015
  Transmission Date: 20200122
  Serious: Yes (Hospitalization)
  Sender: FDA-Public Use
  Company Number: PHHY2019ZA165184

PATIENT
  Age: 39 Year
  Sex: Male

DRUGS (1)
  1. TUVIGIN [Suspect]
     Active Substance: FINGOLIMOD HYDROCHLORIDE
     Indication: RELAPSING-REMITTING MULTIPLE SCLEROSIS
     Dosage: 0.5 MG, QD
     Route: 065
     Dates: start: 201808

REACTIONS (5)
  - Vertigo [Recovering/Resolving]
  - Drug ineffective [Unknown]
  - Hypoaesthesia [Recovering/Resolving]
  - Muscular weakness [Recovering/Resolving]
  - Multiple sclerosis relapse [Recovering/Resolving]

NARRATIVE: CASE EVENT DATE: 20181016
